FAERS Safety Report 24685526 (Version 1)
Quarter: 2024Q4

REPORT INFORMATION
  Report Type: Spontaneous
  Country: US (occurrence: None)
  Receive Date: 20241127
  Receipt Date: 20241127
  Transmission Date: 20250115
  Serious: Yes (Other)
  Sender: Public
  Company Number: None

PATIENT
  Age: 41 Year
  Sex: Female
  Weight: 118.84 kg

DRUGS (7)
  1. LILETTA [Suspect]
     Active Substance: LEVONORGESTREL
  2. Zepbound 5mg auto injector [Concomitant]
  3. IBUPROFEN [Concomitant]
     Active Substance: IBUPROFEN
  4. TYLENOL [Concomitant]
     Active Substance: ACETAMINOPHEN
  5. FERROUS SULFATE [Concomitant]
     Active Substance: FERROUS SULFATE
  6. MAGNESIUM CITRATE [Concomitant]
     Active Substance: MAGNESIUM CITRATE
  7. DOCUSATE [Concomitant]
     Active Substance: DOCUSATE

REACTIONS (7)
  - Feeling abnormal [None]
  - Thrombosis [None]
  - Device expulsion [None]
  - Diarrhoea [None]
  - Flushing [None]
  - Malaise [None]
  - Pelvic inflammatory disease [None]

NARRATIVE: CASE EVENT DATE: 20241122
